FAERS Safety Report 6024110-0 (Version None)
Quarter: 2008Q4

REPORT INFORMATION
  Report Type: 
  Country: None (occurrence: None)
  Receive Date: 20081229
  Receipt Date: 20081209
  Transmission Date: 20090506
  Serious: Yes (Hospitalization, Other)
  Sender: FDA-Public Use
  Company Number: JPI-P-005593

PATIENT
  Age: 50 Year
  Sex: Female

DRUGS (2)
  1. XYREM [Suspect]
     Indication: DRUG USE FOR UNKNOWN INDICATION
     Dosage: 4.5 GM (2.25 GM, 2 IN 1 D), ORAL
     Route: 048
     Dates: start: 20081118
  2. UNSPECIFIED PAIN MEDICATIONS [Suspect]
     Indication: PAIN

REACTIONS (10)
  - ABDOMINAL DISCOMFORT [None]
  - DIZZINESS [None]
  - ENURESIS [None]
  - GAIT DISTURBANCE [None]
  - HYPOAESTHESIA [None]
  - OEDEMA PERIPHERAL [None]
  - PAIN [None]
  - PARAESTHESIA [None]
  - SOMNOLENCE [None]
  - URETERIC OBSTRUCTION [None]
